FAERS Safety Report 5487003-3 (Version None)
Quarter: 2007Q4

REPORT INFORMATION
  Report Type: 
  Country: None (occurrence: None)
  Receive Date: 20071016
  Receipt Date: 20071004
  Transmission Date: 20080405
  Serious: Yes (Disabling)
  Sender: FDA-Public Use
  Company Number: GB-RANBAXY-2007RR-10533

PATIENT

DRUGS (4)
  1. SIMVASTATIN [Suspect]
     Indication: CORONARY ARTERY BYPASS
     Dosage: 40 MG, UNK
     Route: 048
     Dates: start: 20070701, end: 20070827
  2. SIMVASTATIN [Suspect]
     Indication: PROPHYLAXIS
  3. DISPERSIBLE ASPIRIN 75MG TABLETS BP [Concomitant]
     Indication: CORONARY ARTERY BYPASS
     Dosage: 75 MG, UNK
     Route: 048
     Dates: start: 20000101
  4. RAMIPRIL 5 MG CAPSULES [Concomitant]
     Indication: BLOOD PRESSURE INCREASED
     Dosage: 5 MG, UNK
     Route: 048
     Dates: start: 20000601

REACTIONS (3)
  - AFFECTIVE DISORDER [None]
  - FEELING ABNORMAL [None]
  - TEARFULNESS [None]
